FAERS Safety Report 4469267-8 (Version None)
Quarter: 2004Q4

REPORT INFORMATION
  Report Type: 
  Country: None (occurrence: None)
  Receive Date: 20041008
  Receipt Date: 20030714
  Transmission Date: 20050328
  Serious: No
  Sender: FDA-Public Use
  Company Number: US-BRISTOL-MYERS SQUIBB COMPANY-12325999

PATIENT
  Age: 75 Year
  Sex: Female
  Weight: 66 kg

DRUGS (10)
  1. AVAPRO [Suspect]
     Indication: HYPERTENSION
     Dosage: THERAPY FROM:  FEB-2001 OR MAR-2001.  DOSE REDUCED TO 75 MG ON 30-SEP-2003
     Route: 048
     Dates: start: 20010101
  2. ELAVIL [Concomitant]
  3. MOTRIN [Concomitant]
  4. TYLENOL [Concomitant]
  5. MULTIVITAMIN [Concomitant]
  6. VITAMIN B COMPLEX CAP [Concomitant]
  7. LECITHIN [Concomitant]
  8. CALCIUM [Concomitant]
  9. CHONDROITIN + GLUCOSAMINE [Concomitant]
  10. SELENIUM TRACE METAL ADDITIVE [Concomitant]

REACTIONS (13)
  - ANXIETY [None]
  - ASTHENIA [None]
  - CHEST PAIN [None]
  - CONSTIPATION [None]
  - DEPRESSION [None]
  - DIZZINESS [None]
  - DYSPNOEA [None]
  - FATIGUE [None]
  - FEELING JITTERY [None]
  - GASTRIC DISORDER [None]
  - NASAL CONGESTION [None]
  - PALPITATIONS [None]
  - RASH [None]
